FAERS Safety Report 8439482-7 (Version None)
Quarter: 2012Q2

REPORT INFORMATION
  Report Type: 
  Country: None (occurrence: None)
  Receive Date: 20120611
  Receipt Date: 20120611
  Transmission Date: 20120825
  Serious: No
  Sender: FDA-Public Use
  Company Number: None

PATIENT
  Age: 67 Year
  Sex: Female

DRUGS (1)
  1. SENSIPAR [Suspect]
     Indication: HYPERPARATHYROIDISM
     Dosage: 30 MG DAILY PO
     Route: 048
     Dates: start: 20090601, end: 20100111

REACTIONS (8)
  - HYPOAESTHESIA [None]
  - HYPOGLYCAEMIA [None]
  - ARTHRALGIA [None]
  - LETHARGY [None]
  - BLOOD PARATHYROID HORMONE INCREASED [None]
  - OEDEMA PERIPHERAL [None]
  - ABDOMINAL RIGIDITY [None]
  - MUSCLE SPASMS [None]
